FAERS Safety Report 16867174 (Version 1)
Quarter: 2019Q3

REPORT INFORMATION
  Report Type: Spontaneous
  Country: GR (occurrence: GR)
  Receive Date: 20190930
  Receipt Date: 20190930
  Transmission Date: 20191005
  Serious: Yes (Hospitalization, Other)
  Sender: FDA-Public Use
  Company Number: GR-ROCHE-2419084

PATIENT
  Age: 65 Year
  Sex: Female

DRUGS (2)
  1. CAPECITABINE. [Suspect]
     Active Substance: CAPECITABINE
     Indication: BREAST CANCER METASTATIC
     Route: 048
  2. BRIVUDINE [Interacting]
     Active Substance: BRIVUDINE
     Indication: BREAST CANCER METASTATIC
     Route: 065

REACTIONS (15)
  - Oesophagitis [Unknown]
  - Neutropenia [Unknown]
  - Diarrhoea [Unknown]
  - Pseudomonas test positive [Unknown]
  - Pharyngeal inflammation [Unknown]
  - Palmar-plantar erythrodysaesthesia syndrome [Unknown]
  - Pneumonia klebsiella [Unknown]
  - Agranulocytosis [Unknown]
  - Thrombocytopenia [Recovering/Resolving]
  - Candida infection [Unknown]
  - Anaemia [Unknown]
  - Drug interaction [Unknown]
  - Asthenia [Unknown]
  - Stomatitis [Unknown]
  - Rash [Unknown]
